FAERS Safety Report 23416549 (Version 1)
Quarter: 2024Q1

REPORT INFORMATION
  Report Type: Report from Study
  Country: US (occurrence: US)
  Receive Date: 20240118
  Receipt Date: 20240118
  Transmission Date: 20240409
  Serious: Yes (Hospitalization, Other)
  Sender: FDA-Public Use
  Company Number: US-ABBVIE-5590494

PATIENT
  Age: 85 Year
  Sex: Female

DRUGS (1)
  1. VENCLEXTA [Suspect]
     Active Substance: VENETOCLAX
     Indication: Product used for unknown indication
     Dosage: LAST DATE- JAN 2024
     Route: 048
     Dates: start: 20240108

REACTIONS (5)
  - Heart valve incompetence [Recovering/Resolving]
  - Loss of consciousness [Recovering/Resolving]
  - Head injury [Recovering/Resolving]
  - Wrist fracture [Recovering/Resolving]
  - Fall [Unknown]

NARRATIVE: CASE EVENT DATE: 20240109
